FAERS Safety Report 4585034-9 (Version None)
Quarter: 2005Q1

REPORT INFORMATION
  Report Type: 
  Country: None (occurrence: None)
  Receive Date: 20050217
  Receipt Date: 20041209
  Transmission Date: 20050727
  Serious: No
  Sender: FDA-Public Use
  Company Number: US-GLAXOSMITHKLINE-A0536786A

PATIENT
  Age: 48 Year
  Sex: Female
  Weight: 84.1 kg

DRUGS (5)
  1. WELLBUTRIN XL [Suspect]
     Indication: DEPRESSION
     Dosage: 450MG PER DAY
     Route: 048
     Dates: start: 20040101
  2. BUSPAR [Concomitant]
  3. GLUCOPHAGE XR [Concomitant]
  4. AVANDIA [Concomitant]
  5. PREVACID [Concomitant]

REACTIONS (3)
  - ABDOMINAL DISCOMFORT [None]
  - HOT FLUSH [None]
  - PREMATURE MENOPAUSE [None]
